FAERS Safety Report 7238169-6 (Version None)
Quarter: 2011Q1

REPORT INFORMATION
  Report Type: 
  Country: None (occurrence: None)
  Receive Date: 20110119
  Receipt Date: 20110119
  Transmission Date: 20110831
  Serious: Yes (Other)
  Sender: FDA-Public Use
  Company Number: None

PATIENT
  Age: 64 Day
  Sex: Female
  Weight: 107.9561 kg

DRUGS (1)
  1. LEVAQUIN [Suspect]
     Indication: VAGINITIS BACTERIAL
     Dosage: 250MG 5DAYS
     Dates: start: 20100928, end: 20100930

REACTIONS (1)
  - HYPOAESTHESIA [None]
